FAERS Safety Report 13151601 (Version 1)
Quarter: 2017Q1

REPORT INFORMATION
  Report Type: Spontaneous
  Country: CL (occurrence: CL)
  Receive Date: 20170125
  Receipt Date: 20170125
  Transmission Date: 20170428
  Serious: Yes (Death, Other)
  Sender: FDA-Public Use
  Company Number: CL-MYLANLABS-2017M1004458

PATIENT

DRUGS (2)
  1. CISPLATIN. [Suspect]
     Active Substance: CISPLATIN
     Route: 064
  2. FLUOROURACIL. [Suspect]
     Active Substance: FLUOROURACIL
     Route: 064

REACTIONS (7)
  - Cardiac failure [Unknown]
  - Death [Fatal]
  - Renal failure [Unknown]
  - Foetal exposure during pregnancy [Unknown]
  - Respiratory failure [Unknown]
  - Premature baby [Unknown]
  - Low birth weight baby [Unknown]
